FAERS Safety Report 5582922-1 (Version None)
Quarter: 2008Q1

REPORT INFORMATION
  Report Type: 
  Country: None (occurrence: None)
  Receive Date: 20080107
  Receipt Date: 20071228
  Transmission Date: 20080703
  Serious: Yes (Hospitalization)
  Sender: FDA-Public Use
  Company Number: GB-ROCHE-539087

PATIENT
  Age: 70 Year
  Sex: Female
  Weight: 101.6 kg

DRUGS (2)
  1. ORLISTAT [Suspect]
     Indication: OBESITY
     Route: 048
     Dates: start: 20070912, end: 20071207
  2. METFORMIN HCL [Concomitant]
     Route: 048
     Dates: end: 20071207

REACTIONS (2)
  - CHOLELITHIASIS [None]
  - RENAL DISORDER [None]
